FAERS Safety Report 21034492 (Version 1)
Quarter: 2022Q3

REPORT INFORMATION
  Report Type: Spontaneous
  Country: CA (occurrence: CA)
  Receive Date: 20220701
  Receipt Date: 20220701
  Transmission Date: 20221026
  Serious: Yes (Other)
  Sender: FDA-Public Use
  Company Number: CA-TEVA-2022-CA-2050334

PATIENT
  Age: 54 Year
  Sex: Female

DRUGS (3)
  1. PREDNISONE [Suspect]
     Active Substance: PREDNISONE
     Indication: Product used for unknown indication
     Route: 065
  2. CELEBREX [Suspect]
     Active Substance: CELECOXIB
     Indication: Arthralgia
     Route: 065
  3. MESALAMINE [Suspect]
     Active Substance: MESALAMINE
     Indication: Product used for unknown indication
     Route: 065

REACTIONS (4)
  - Abdominal pain [Not Recovered/Not Resolved]
  - Colitis ulcerative [Not Recovered/Not Resolved]
  - Diarrhoea [Not Recovered/Not Resolved]
  - Haematochezia [Not Recovered/Not Resolved]
